FAERS Safety Report 7823393-1 (Version None)
Quarter: 2011Q4

REPORT INFORMATION
  Report Type: 
  Country: None (occurrence: None)
  Receive Date: 20111014
  Receipt Date: 20111006
  Transmission Date: 20120403
  Serious: Yes (Congenital Anomaly)
  Sender: FDA-Public Use
  Company Number: 1000024030

PATIENT
  Sex: Male

DRUGS (2)
  1. LEXAPRO [Suspect]
     Dosage: 10 MG), TRANSPLACENTAL
     Route: 064
     Dates: start: 20070101, end: 20071205
  2. PRENATAL VITAMINS (PRENATAL VITAMINS) (PRENATAL VITAMINS) [Concomitant]

REACTIONS (5)
  - MENTAL RETARDATION [None]
  - MATERNAL DRUGS AFFECTING FOETUS [None]
  - CRANIOSYNOSTOSIS [None]
  - CONGENITAL AORTIC DILATATION [None]
  - BICUSPID AORTIC VALVE [None]
